FAERS Safety Report 6845716-2 (Version None)
Quarter: 2010Q3

REPORT INFORMATION
  Report Type: 
  Country: None (occurrence: None)
  Receive Date: 20100715
  Receipt Date: 20070821
  Transmission Date: 20110219
  Serious: No
  Sender: FDA-Public Use
  Company Number: US-PFIZER INC-2007071740

PATIENT
  Sex: Female
  Weight: 59.1 kg

DRUGS (2)
  1. CHANTIX [Suspect]
     Dates: start: 20070801
  2. MELATONIN [Concomitant]

REACTIONS (6)
  - ABNORMAL DREAMS [None]
  - AGITATION [None]
  - ANGER [None]
  - FATIGUE [None]
  - INSOMNIA [None]
  - NERVOUSNESS [None]
